FAERS Safety Report 13198918 (Version 2)
Quarter: 2017Q2

REPORT INFORMATION
  Report Type: Spontaneous
  Country: DE (occurrence: DE)
  Receive Date: 20170208
  Receipt Date: 20170407
  Transmission Date: 20170830
  Serious: Yes (Disabling, Other)
  Sender: FDA-Public Use
  Company Number: DE-GILEAD-2016-0244062

PATIENT
  Sex: Male
  Weight: 62 kg

DRUGS (2)
  1. GENVOYA [Suspect]
     Active Substance: COBICISTAT\ELVITEGRAVIR\EMTRICITABINE\TENOFOVIR ALAFENAMIDE FUMARATE
     Indication: HIV INFECTION
     Dosage: UNK
     Route: 065
     Dates: start: 2016
  2. ISENTRESS [Concomitant]
     Active Substance: RALTEGRAVIR POTASSIUM

REACTIONS (13)
  - Angiopathy [Unknown]
  - Cerebral haemorrhage [Unknown]
  - Microangiopathy [Unknown]
  - Glaucoma [Unknown]
  - Haemangioma [Unknown]
  - Rhinorrhoea [Not Recovered/Not Resolved]
  - Peripheral sensory neuropathy [Unknown]
  - Unevaluable event [Unknown]
  - Suicidal ideation [Unknown]
  - Meniere^s disease [Unknown]
  - Vertigo [Not Recovered/Not Resolved]
  - Fatigue [Not Recovered/Not Resolved]
  - Superficial siderosis of central nervous system [Unknown]
